FAERS Safety Report 23590348 (Version 1)
Quarter: 2024Q1

REPORT INFORMATION
  Report Type: Spontaneous
  Country: US (occurrence: None)
  Receive Date: 20240301
  Receipt Date: 20240301
  Transmission Date: 20240410
  Serious: Yes (Other)
  Sender: FDA-Public Use
  Company Number: None

PATIENT
  Age: 81 Year
  Sex: Female

DRUGS (1)
  1. AMBRISENTAN [Suspect]
     Active Substance: AMBRISENTAN
     Indication: Pulmonary arterial hypertension
     Dosage: FREQUENCY : DAILY;?
     Route: 048
     Dates: start: 20240224, end: 20240227

REACTIONS (4)
  - Hypotension [None]
  - Brain natriuretic peptide increased [None]
  - Blood creatine increased [None]
  - Blood urea increased [None]

NARRATIVE: CASE EVENT DATE: 20240301
